FAERS Safety Report 5755328-X (Version None)
Quarter: 2008Q2

REPORT INFORMATION
  Report Type: 
  Country: None (occurrence: None)
  Receive Date: 20080602
  Receipt Date: 20080318
  Transmission Date: 20081010
  Serious: Yes (Death, Other)
  Sender: FDA-Public Use
  Company Number: IL-BAYER-200818907GPV

PATIENT

DRUGS (8)
  1. FLUDARABINE PHOSPHATE [Suspect]
     Indication: BONE MARROW CONDITIONING REGIMEN
     Route: 065
  2. TREOSULFAN [Suspect]
     Indication: BONE MARROW CONDITIONING REGIMEN
     Route: 065
  3. ANTITHYMOCYTE GLOBULIN (ATG) [Concomitant]
     Indication: DRUG USE FOR UNKNOWN INDICATION
     Route: 065
  4. CYCLOSPORINE [Concomitant]
     Indication: PROPHYLAXIS AGAINST GRAFT VERSUS HOST DISEASE
     Route: 065
  5. METHOTREXATE [Concomitant]
     Indication: PROPHYLAXIS AGAINST GRAFT VERSUS HOST DISEASE
     Route: 065
  6. METHOTREXATE [Concomitant]
     Route: 065
  7. NEUPOGEN [Concomitant]
     Indication: DRUG USE FOR UNKNOWN INDICATION
  8. ANTIBIOTICS [Concomitant]
     Indication: PROPHYLAXIS
     Route: 065

REACTIONS (14)
  - ACUTE GRAFT VERSUS HOST DISEASE [None]
  - BACTERIAL INFECTION [None]
  - BLOOD BILIRUBIN INCREASED [None]
  - CARDIAC FAILURE [None]
  - CEREBRAL HAEMORRHAGE [None]
  - CHRONIC GRAFT VERSUS HOST DISEASE [None]
  - FUNGAL INFECTION [None]
  - MUCOSAL INFLAMMATION [None]
  - MULTI-ORGAN FAILURE [None]
  - PANCYTOPENIA [None]
  - PYREXIA [None]
  - RENAL FAILURE [None]
  - SEPSIS [None]
  - VENOOCCLUSIVE LIVER DISEASE [None]
